FAERS Safety Report 13821701 (Version 1)
Quarter: 2017Q3

REPORT INFORMATION
  Report Type: Spontaneous
  Country: US (occurrence: US)
  Receive Date: 20170801
  Receipt Date: 20170801
  Transmission Date: 20171127
  Serious: No
  Sender: FDA-Public Use
  Company Number: US-009507513-1707USA013110

PATIENT
  Age: 35 Year
  Sex: Male

DRUGS (2)
  1. COZAAR [Suspect]
     Active Substance: LOSARTAN POTASSIUM
     Dosage: UNK
     Route: 048
     Dates: start: 2017
  2. FENTANYL. [Concomitant]
     Active Substance: FENTANYL

REACTIONS (8)
  - Blood pressure increased [Recovered/Resolved]
  - Agitation [Unknown]
  - Mania [Unknown]
  - Muscle spasms [Unknown]
  - Crying [Recovered/Resolved]
  - Paraesthesia [Recovered/Resolved]
  - Headache [Unknown]
  - Confusional state [Unknown]

NARRATIVE: CASE EVENT DATE: 2017
